FAERS Safety Report 22089704 (Version 1)
Quarter: 2023Q1

REPORT INFORMATION
  Report Type: Spontaneous
  Country: US (occurrence: None)
  Receive Date: 20230311
  Receipt Date: 20230311
  Transmission Date: 20230418
  Serious: Yes (Death)
  Sender: FDA-Public Use
  Company Number: None

PATIENT
  Age: 70 Year
  Sex: Female

DRUGS (2)
  1. AMBRISENTAN [Suspect]
     Active Substance: AMBRISENTAN
     Indication: Pulmonary arterial hypertension
     Route: 048
     Dates: start: 20221014, end: 20221110
  2. AMBRISENTAN [Suspect]
     Active Substance: AMBRISENTAN
     Indication: Heritable pulmonary arterial hypertension

REACTIONS (7)
  - Systemic inflammatory response syndrome [None]
  - Encephalopathy [None]
  - Septic shock [None]
  - Acute kidney injury [None]
  - Upper gastrointestinal haemorrhage [None]
  - Pulmonary hypertension [None]
  - Acute respiratory failure [None]

NARRATIVE: CASE EVENT DATE: 20221203
